FAERS Safety Report 13042470 (Version 1)
Quarter: 2016Q4

REPORT INFORMATION
  Report Type: Spontaneous
  Country: US (occurrence: US)
  Receive Date: 20161219
  Receipt Date: 20161219
  Transmission Date: 20170207
  Serious: Yes (Other)
  Sender: FDA-Public Use
  Company Number: PHHY2016US170932

PATIENT
  Age: 46 Year
  Sex: Female

DRUGS (1)
  1. ZOLEDRONATE [Suspect]
     Active Substance: ZOLEDRONIC ACID
     Indication: BONE DENSITY DECREASED
     Dosage: 4 INFUSIONS
     Route: 042
     Dates: start: 2007, end: 2014

REACTIONS (2)
  - Femur fracture [Recovering/Resolving]
  - Pain in extremity [Unknown]
